FAERS Safety Report 16865330 (Version 1)
Quarter: 2019Q3

REPORT INFORMATION
  Report Type: Spontaneous
  Country: CH (occurrence: CH)
  Receive Date: 20190930
  Receipt Date: 20190930
  Transmission Date: 20191005
  Serious: Yes (Life-Threatening)
  Sender: FDA-Public Use
  Company Number: CH-SA-2019SA265264

PATIENT
  Age: 69 Year
  Sex: Female

DRUGS (10)
  1. ACIDUM FOLICUM [Concomitant]
     Active Substance: FOLIC ACID
     Dosage: UNK UNK, UNK
  2. PURSANA [Concomitant]
     Active Substance: FIG FRUIT OIL\SORBITOL
     Dosage: UNK UNK, UNK
  3. PIPERACILLIN SODIUM/TAZOBACTAM SODIUM [Suspect]
     Active Substance: PIPERACILLIN SODIUM\TAZOBACTAM SODIUM
     Dosage: UNK UNK, UNK
     Route: 065
     Dates: start: 20190811, end: 20190818
  4. CETIRIZINE [Concomitant]
     Active Substance: CETIRIZINE HYDROCHLORIDE
     Dosage: UNK UNK, UNK
     Dates: start: 20190827, end: 20190827
  5. CLEXANE [Suspect]
     Active Substance: ENOXAPARIN SODIUM
     Dosage: UNK UNK, UNK
     Route: 065
     Dates: start: 20190811, end: 20190822
  6. SINTROM [Suspect]
     Active Substance: ACENOCOUMAROL
     Dosage: UNK UNK, UNK
     Route: 065
     Dates: start: 20190822, end: 20190827
  7. TORASEMIDE [Concomitant]
     Active Substance: TORSEMIDE
     Dosage: UNK UNK, UNK
  8. SULFAMETHOXAZOLE/TRIMETHOPRIM [Suspect]
     Active Substance: SULFAMETHOXAZOLE\TRIMETHOPRIM
     Dosage: UNK UNK, UNK
     Route: 065
     Dates: start: 20190811, end: 20190818
  9. OFEV [Concomitant]
     Active Substance: NINTEDANIB
     Dosage: UNK UNK, UNK
     Dates: start: 2013
  10. RITUXIMAB. [Concomitant]
     Active Substance: RITUXIMAB
     Dosage: UNK UNK, UNK, IN TOTAL

REACTIONS (1)
  - Drug reaction with eosinophilia and systemic symptoms [Not Recovered/Not Resolved]

NARRATIVE: CASE EVENT DATE: 20190825
